FAERS Safety Report 12284531 (Version 1)
Quarter: 2016Q2

REPORT INFORMATION
  Report Type: Spontaneous
  Country: US (occurrence: US)
  Receive Date: 20160420
  Receipt Date: 20160420
  Transmission Date: 20160815
  Serious: No
  Sender: FDA-Public Use
  Company Number: US-TEVA-628004USA

PATIENT
  Sex: Female

DRUGS (1)
  1. NICOTINIC ACID [Suspect]
     Active Substance: NIACIN

REACTIONS (6)
  - Pruritus [Recovered/Resolved]
  - Abdominal pain upper [Unknown]
  - Skin burning sensation [Recovered/Resolved]
  - Incorrect dose administered [Unknown]
  - Headache [Unknown]
  - Flushing [Recovered/Resolved]
